FAERS Safety Report 7113895-8 (Version None)
Quarter: 2010Q4

REPORT INFORMATION
  Report Type: 
  Country: None (occurrence: None)
  Receive Date: 20101119
  Receipt Date: 20100922
  Transmission Date: 20110411
  Serious: No
  Sender: FDA-Public Use
  Company Number: US-BAYER-201021708BCC

PATIENT
  Age: 16 Year
  Sex: Female

DRUGS (1)
  1. MIDOL EXTENDED RELIEF CAPLETS [Suspect]
     Indication: PRODUCT USED FOR UNKNOWN INDICATION
     Route: 065
     Dates: start: 19660101, end: 19660101

REACTIONS (2)
  - HEART RATE INCREASED [None]
  - PALPITATIONS [None]
